FAERS Safety Report 19111196 (Version 1)
Quarter: 2021Q2

REPORT INFORMATION
  Report Type: Spontaneous
  Country: GB (occurrence: GB)
  Receive Date: 20210408
  Receipt Date: 20210408
  Transmission Date: 20210717
  Serious: Yes (Disabling, Other)
  Sender: FDA-Public Use
  Company Number: GB-ORGANON-O2104GBR000298

PATIENT
  Age: 61 Year
  Sex: Female
  Weight: 84.36 kg

DRUGS (4)
  1. ALENDRONATE SODIUM. [Suspect]
     Active Substance: ALENDRONATE SODIUM
     Indication: OSTEOPENIA
     Dosage: 70 MILLIGRAM
     Route: 048
     Dates: start: 20210327, end: 20210327
  2. ACTIM [Concomitant]
     Active Substance: BISOPROLOL FUMARATE
     Indication: ILL-DEFINED DISORDER
     Dosage: UNK
  3. INDAPAMIDE. [Concomitant]
     Active Substance: INDAPAMIDE
     Indication: ILL-DEFINED DISORDER
     Dosage: UNK
  4. FELODIPINE. [Concomitant]
     Active Substance: FELODIPINE
     Indication: ILL-DEFINED DISORDER

REACTIONS (4)
  - Pain in jaw [Recovered/Resolved]
  - Back pain [Recovered/Resolved]
  - Diarrhoea [Recovered/Resolved]
  - Arthralgia [Recovered/Resolved]

NARRATIVE: CASE EVENT DATE: 20210327
